FAERS Safety Report 12725158 (Version 1)
Quarter: 2016Q3

REPORT INFORMATION
  Report Type: Spontaneous
  Country: US (occurrence: US)
  Receive Date: 20160908
  Receipt Date: 20160908
  Transmission Date: 20161109
  Serious: Yes (Other)
  Sender: FDA-Public Use
  Company Number: US-BIOMARINAP-US-2016-110504

PATIENT
  Sex: Female
  Weight: 45 kg

DRUGS (1)
  1. NAGLAZYME [Suspect]
     Active Substance: GALSULFASE
     Indication: MUCOPOLYSACCHARIDOSIS VI
     Dosage: UNK, QW
     Route: 065
     Dates: start: 20050722

REACTIONS (7)
  - Speech disorder [Unknown]
  - Pain [Unknown]
  - Blindness [Unknown]
  - Gait disturbance [Unknown]
  - Dyspnoea exertional [Unknown]
  - X-ray of pelvis and hip abnormal [Unknown]
  - Muscular weakness [Unknown]
